FAERS Safety Report 26127034 (Version 1)
Quarter: 2025Q4

REPORT INFORMATION
  Report Type: Spontaneous
  Country: EU (occurrence: EU)
  Receive Date: 20251205
  Receipt Date: 20251205
  Transmission Date: 20260117
  Serious: Yes (Hospitalization, Other)
  Sender: HILL DERMACEUTICALS, INC.
  Company Number: EU-Hill Dermaceuticals, Inc.-2189953

PATIENT
  Age: 60 Year

DRUGS (11)
  1. FLUOROURACIL [Suspect]
     Active Substance: FLUOROURACIL
  2. VYLOY [Suspect]
     Active Substance: ZOLBETUXIMAB-CLZB
     Dates: start: 20250423, end: 20250902
  3. ALMAGATE [Concomitant]
     Active Substance: ALMAGATE
  4. PANTOPRAZOLE [Concomitant]
     Active Substance: PANTOPRAZOLE
  5. FOSAPREPITANT [Concomitant]
     Active Substance: FOSAPREPITANT
  6. DEXAMETHASONE [Concomitant]
     Active Substance: DEXAMETHASONE
  7. ENSURE [Concomitant]
     Active Substance: AMINO ACIDS\DEXTROSE\ELECTROLYTES NOS\SOYBEAN OIL\VITAMINS
  8. FENTANYL [Concomitant]
     Active Substance: FENTANYL
  9. ABSTRAL [Concomitant]
     Active Substance: FENTANYL CITRATE
  10. LORAZEPAM [Concomitant]
     Active Substance: LORAZEPAM
  11. OXALIPLATIN [Suspect]
     Active Substance: OXALIPLATIN

REACTIONS (5)
  - Protein total decreased [Unknown]
  - Nausea [Unknown]
  - Toxicity to various agents [Unknown]
  - Malnutrition [Unknown]
  - Vomiting [Recovered/Resolved]

NARRATIVE: CASE EVENT DATE: 20250423
